FAERS Safety Report 6385176-1 (Version None)
Quarter: 2009Q4

REPORT INFORMATION
  Report Type: 
  Country: None (occurrence: None)
  Receive Date: 20091002
  Receipt Date: 20081014
  Transmission Date: 20100525
  Serious: No
  Sender: FDA-Public Use
  Company Number: US-ASTRAZENECA-2005UW14313

PATIENT
  Age: 53 Year
  Sex: Female

DRUGS (6)
  1. ARIMIDEX [Suspect]
  2. ARIMIDEX [Suspect]
  3. LOVASTATIN [Concomitant]
  4. DIOVAN [Concomitant]
  5. EFFEXOR [Concomitant]
  6. BONIVA [Concomitant]

REACTIONS (2)
  - ARTHRITIS [None]
  - CARPAL TUNNEL SYNDROME [None]
